FAERS Safety Report 7944063-5 (Version None)
Quarter: 2011Q4

REPORT INFORMATION
  Report Type: 
  Country: None (occurrence: None)
  Receive Date: 20111128
  Receipt Date: 20111121
  Transmission Date: 20120403
  Serious: Yes (Hospitalization)
  Sender: FDA-Public Use
  Company Number: IT-ASTRAZENECA-2011SE70518

PATIENT
  Age: 28216 Day
  Sex: Female

DRUGS (9)
  1. TENORMIN [Suspect]
     Indication: HYPERTENSION
     Route: 048
     Dates: start: 20110804, end: 20111104
  2. LORTAAN [Suspect]
     Indication: ESSENTIAL HYPERTENSION
     Route: 048
     Dates: start: 20110804, end: 20111104
  3. POTASSIO CANREONATO SANDOZ [Suspect]
     Indication: HYPERTENSION
     Route: 048
     Dates: start: 20110804, end: 20111104
  4. RABEPRAZOLE SODIUM [Concomitant]
  5. SIMVASTATIN [Concomitant]
  6. ASPIRIN [Suspect]
     Indication: THROMBOSIS PROPHYLAXIS
     Route: 048
     Dates: start: 20110804, end: 20111104
  7. CITALOPRAM MOLTENI [Concomitant]
  8. METFORMINA AUROBINDO PHARMA [Concomitant]
  9. FUROSEMIDE [Suspect]
     Indication: HYPERTENSION
     Route: 048
     Dates: start: 20110804, end: 20111104

REACTIONS (3)
  - HYPERKALAEMIA [None]
  - RENAL FAILURE [None]
  - ABDOMINAL PAIN [None]
